FAERS Safety Report 14223827 (Version 2)
Quarter: 2018Q1

REPORT INFORMATION
  Report Type: Spontaneous
  Country: GR (occurrence: GR)
  Receive Date: 20171125
  Receipt Date: 20180220
  Transmission Date: 20180508
  Serious: Yes (Other)
  Sender: FDA-Public Use
  Company Number: GR-AMGEN-GRCSP2017175421

PATIENT
  Age: 58 Year
  Sex: Male

DRUGS (3)
  1. REPATHA [Suspect]
     Active Substance: EVOLOCUMAB
     Dosage: UNK UNK, QMO
     Route: 065
     Dates: start: 2017
  2. REPATHA [Suspect]
     Active Substance: EVOLOCUMAB
     Indication: HYPERCHOLESTEROLAEMIA
     Dosage: UNK UNK, Q2WK
     Route: 065
     Dates: start: 201707, end: 201711
  3. FUROLIN [Concomitant]

REACTIONS (8)
  - Respiratory tract infection [Recovered/Resolved]
  - Renal colic [Recovered/Resolved]
  - Urethritis noninfective [Unknown]
  - Hypotonia [Unknown]
  - Blood urine [Unknown]
  - Urethral stenosis [Unknown]
  - Pollakiuria [Unknown]
  - Micturition disorder [Unknown]

NARRATIVE: CASE EVENT DATE: 201707
